FAERS Safety Report 20832699 (Version 1)
Quarter: 2022Q2

REPORT INFORMATION
  Report Type: Spontaneous
  Country: US (occurrence: None)
  Receive Date: 20220514
  Receipt Date: 20220514
  Transmission Date: 20220721
  Serious: No
  Sender: FDA-Public Use
  Company Number: None

PATIENT
  Age: 46 Year
  Sex: Male
  Weight: 88.65 kg

DRUGS (1)
  1. PAXLOVID [Suspect]
     Active Substance: NIRMATRELVIR\RITONAVIR
     Indication: COVID-19
     Dosage: OTHER QUANTITY : 3 CAPSULE(S);?FREQUENCY : TWICE A DAY;?
     Route: 048
     Dates: start: 20220508, end: 20220510

REACTIONS (11)
  - Dysgeusia [None]
  - Abdominal distension [None]
  - Dizziness [None]
  - Nausea [None]
  - Constipation [None]
  - Pain [None]
  - Fatigue [None]
  - Electrolyte imbalance [None]
  - Diarrhoea [None]
  - Abdominal pain [None]
  - Drug interaction [None]

NARRATIVE: CASE EVENT DATE: 20220508
